FAERS Safety Report 7414228-X (Version None)
Quarter: 2011Q2

REPORT INFORMATION
  Report Type: 
  Country: None (occurrence: None)
  Receive Date: 20110414
  Receipt Date: 20110408
  Transmission Date: 20111010
  Serious: Yes (Hospitalization)
  Sender: FDA-Public Use
  Company Number: US-ELI_LILLY_AND_COMPANY-US201104002456

PATIENT
  Sex: Female

DRUGS (3)
  1. AMARYL [Concomitant]
  2. BYETTA [Suspect]
     Dosage: 5 UG, UNK
     Route: 058
  3. BYETTA [Suspect]
     Dosage: 10 UG, UNK
     Route: 058

REACTIONS (4)
  - BLOOD CALCIUM INCREASED [None]
  - NAUSEA [None]
  - VOMITING [None]
  - DIARRHOEA [None]
